FAERS Safety Report 24731861 (Version 1)
Quarter: 2024Q4

REPORT INFORMATION
  Report Type: Report from Study
  Country: US (occurrence: US)
  Receive Date: 20241213
  Receipt Date: 20241213
  Transmission Date: 20250114
  Serious: Yes (Hospitalization)
  Sender: ABBVIE
  Company Number: US-ABBVIE-6041778

PATIENT
  Sex: Female

DRUGS (1)
  1. RINVOQ [Suspect]
     Active Substance: UPADACITINIB
     Indication: Colitis ulcerative
     Route: 048
     Dates: end: 2024

REACTIONS (6)
  - Coccidioidomycosis [Unknown]
  - Pneumonia [Unknown]
  - Rash [Unknown]
  - Colitis ulcerative [Unknown]
  - Arthralgia [Unknown]
  - Fatigue [Unknown]
